FAERS Safety Report 25627838 (Version 1)
Quarter: 2025Q3

REPORT INFORMATION
  Report Type: Spontaneous
  Country: EU (occurrence: None)
  Receive Date: 20250731
  Receipt Date: 20250731
  Transmission Date: 20251020
  Serious: Yes (Hospitalization)
  Sender: INFORLIFE
  Company Number: EU-INFO-20250184

PATIENT
  Age: 66 Year
  Sex: Male

DRUGS (3)
  1. METRONIDAZOLE [Suspect]
     Active Substance: METRONIDAZOLE
     Indication: Helicobacter infection
  2. TETRACYCLINE [Suspect]
     Active Substance: TETRACYCLINE
     Indication: Helicobacter infection
  3. BISMUTH SUBSALYCYLATE [Concomitant]
     Indication: Helicobacter infection

REACTIONS (2)
  - Whipple^s disease [Recovered/Resolved]
  - Giardiasis [Recovered/Resolved]

NARRATIVE: CASE EVENT DATE: 20220101
